FAERS Safety Report 17325048 (Version 4)
Quarter: 2020Q1

REPORT INFORMATION
  Report Type: Spontaneous
  Country: JP (occurrence: JP)
  Receive Date: 20200127
  Receipt Date: 20200304
  Transmission Date: 20200409
  Serious: Yes (Hospitalization, Other)
  Sender: FDA-Public Use
  Company Number: JP-B.I. PHARMACEUTICALS,INC./RIDGEFIELD-2020-NB-004364

PATIENT
  Age: 77 Year
  Sex: Male

DRUGS (5)
  1. PRAZAXA [Suspect]
     Active Substance: DABIGATRAN ETEXILATE MESYLATE
     Indication: ATRIAL FIBRILLATION
     Route: 048
     Dates: end: 20200123
  2. DIART [Suspect]
     Active Substance: AZOSEMIDE
     Indication: PRODUCT USED FOR UNKNOWN INDICATION
     Route: 042
  3. MEVALOTIN [Suspect]
     Active Substance: PRAVASTATIN SODIUM
     Indication: PRODUCT USED FOR UNKNOWN INDICATION
     Route: 065
  4. CILOSTAZOL. [Suspect]
     Active Substance: CILOSTAZOL
     Indication: PRODUCT USED FOR UNKNOWN INDICATION
     Route: 065
  5. ZACRAS [Suspect]
     Active Substance: AMLODIPINE BESYLATE\AZILSARTAN
     Indication: PRODUCT USED FOR UNKNOWN INDICATION
     Route: 065

REACTIONS (10)
  - Mouth haemorrhage [Recovering/Resolving]
  - Activated partial thromboplastin time prolonged [Unknown]
  - Gastrointestinal haemorrhage [Not Recovered/Not Resolved]
  - Activated partial thromboplastin time prolonged [Unknown]
  - Prerenal failure [Recovered/Resolved]
  - Dialysis [Unknown]
  - Campylobacter gastroenteritis [Unknown]
  - Vomiting [Unknown]
  - Diarrhoea [Unknown]
  - Food poisoning [Unknown]

NARRATIVE: CASE EVENT DATE: 20200123
